FAERS Safety Report 7823071-9 (Version None)
Quarter: 2011Q4

REPORT INFORMATION
  Report Type: 
  Country: None (occurrence: None)
  Receive Date: 20111018
  Receipt Date: 20110222
  Transmission Date: 20120403
  Serious: No
  Sender: FDA-Public Use
  Company Number: US-ASTRAZENECA-2009SE31875

PATIENT
  Age: 69 Year
  Sex: Male
  Weight: 83.9 kg

DRUGS (6)
  1. OXYGEN [Concomitant]
  2. ALBUTEROL [Concomitant]
     Indication: CHRONIC OBSTRUCTIVE PULMONARY DISEASE
  3. PULMICORT FLEXHALER [Concomitant]
     Route: 055
  4. SYMBICORT [Suspect]
     Indication: CHRONIC OBSTRUCTIVE PULMONARY DISEASE
     Dosage: 160 MCG, TWO PUFFS TWO TIMES A DAY
     Route: 055
     Dates: start: 20090101
  5. SPIRIVA [Concomitant]
     Indication: CHRONIC OBSTRUCTIVE PULMONARY DISEASE
  6. FORADIL [Concomitant]

REACTIONS (5)
  - DRUG DOSE OMISSION [None]
  - SINUS CONGESTION [None]
  - WRONG TECHNIQUE IN DRUG USAGE PROCESS [None]
  - NASAL CONGESTION [None]
  - COUGH [None]
